FAERS Safety Report 24676646 (Version 1)
Quarter: 2024Q4

REPORT INFORMATION
  Report Type: Report from Study
  Country: US (occurrence: US)
  Receive Date: 20241128
  Receipt Date: 20241128
  Transmission Date: 20250115
  Serious: Yes (Hospitalization, Other)
  Sender: HLS THERAPEUTICS
  Company Number: US-HLS-202401528

PATIENT
  Age: 69 Year
  Sex: Female

DRUGS (1)
  1. CLOZAPINE [Suspect]
     Active Substance: CLOZAPINE
     Indication: Product used for unknown indication
     Route: 065

REACTIONS (23)
  - Physical disability [Unknown]
  - Dementia Alzheimer^s type [Unknown]
  - Anxiety disorder [Unknown]
  - Ataxia [Unknown]
  - Bipolar disorder [Unknown]
  - Gait disturbance [Unknown]
  - Thyroid disorder [Unknown]
  - Dissociative identity disorder [Unknown]
  - Dizziness [Unknown]
  - Dyspnoea [Unknown]
  - Gastrooesophageal reflux disease [Unknown]
  - Fall [Unknown]
  - Hyperlipidaemia [Unknown]
  - Hypertensive heart disease [Unknown]
  - Hypothyroidism [Unknown]
  - Intestinal metastasis [Unknown]
  - Muscular weakness [Unknown]
  - Seizure [Unknown]
  - Schizophrenia [Unknown]
  - Parkinsonism [Unknown]
  - Behaviour disorder [Unknown]
  - Post-traumatic stress disorder [Unknown]
  - Restless legs syndrome [Unknown]

NARRATIVE: CASE EVENT DATE: 20220208
